FAERS Safety Report 7892636-0 (Version None)
Quarter: 2011Q4

REPORT INFORMATION
  Report Type: 
  Country: None (occurrence: None)
  Receive Date: 20111102
  Receipt Date: 20111020
  Transmission Date: 20120403
  Serious: Yes (Other)
  Sender: FDA-Public Use
  Company Number: 2011SP050349

PATIENT
  Sex: Female

DRUGS (1)
  1. DULERA ORAL INHALATION [Suspect]
     Indication: ASTHMA

REACTIONS (3)
  - CANDIDIASIS [None]
  - SENSATION OF FOREIGN BODY [None]
  - SWOLLEN TONGUE [None]
